FAERS Safety Report 16853975 (Version 2)
Quarter: 2019Q4

REPORT INFORMATION
  Report Type: Spontaneous
  Country: US (occurrence: US)
  Receive Date: 20190926
  Receipt Date: 20191204
  Transmission Date: 20200122
  Serious: No
  Sender: FDA-Public Use
  Company Number: US-BRISTOL-MYERS SQUIBB COMPANY-BMS-2019-093185

PATIENT
  Age: 64 Year
  Sex: Male
  Weight: 83.01 kg

DRUGS (3)
  1. OPDIVO [Suspect]
     Active Substance: NIVOLUMAB
     Indication: PRODUCT USED FOR UNKNOWN INDICATION
     Dosage: 240 MILLIGRAM, Q2WK
     Route: 065
  2. OPDIVO [Suspect]
     Active Substance: NIVOLUMAB
     Indication: RENAL CELL CARCINOMA STAGE IV
     Dosage: 15 (FIFTEEN TOTAL TREATMENTS INCLUDING THE FIRST FOUR THAT WERE THE COMBINATION AND THE REMAINING TR
     Route: 065
     Dates: start: 20190205
  3. YERVOY [Suspect]
     Active Substance: IPILIMUMAB
     Indication: RENAL CELL CARCINOMA STAGE IV
     Dosage: 15 (FIFTEEN TOTAL TREATMENTS INCLUDING THE FIRST FOUR THAT WERE THE COMBINATION AND THE REMAINING TR
     Route: 065
     Dates: start: 20190205

REACTIONS (2)
  - Diarrhoea [Unknown]
  - Hypoaesthesia [Unknown]

NARRATIVE: CASE EVENT DATE: 201906
